FAERS Safety Report 19038022 (Version 1)
Quarter: 2021Q1

REPORT INFORMATION
  Report Type: Spontaneous
  Country: GB (occurrence: GB)
  Receive Date: 20210322
  Receipt Date: 20210322
  Transmission Date: 20210420
  Serious: Yes (Death, Hospitalization)
  Sender: FDA-Public Use
  Company Number: GB-ACCORD-220023

PATIENT
  Age: 60 Year
  Sex: Male
  Weight: 70 kg

DRUGS (17)
  1. AZITHROMYCIN ANHYDROUS. [Concomitant]
     Active Substance: AZITHROMYCIN ANHYDROUS
     Dosage: MONDAY, WEDNESDAY + FRIDAY
  2. PARACETAMOL [Concomitant]
     Active Substance: ACETAMINOPHEN
  3. ASPIRIN. [Concomitant]
     Active Substance: ASPIRIN
  4. BISOPROLOL [Concomitant]
     Active Substance: BISOPROLOL
  5. LORATADINE. [Concomitant]
     Active Substance: LORATADINE
  6. RIVAROXABAN [Concomitant]
     Active Substance: RIVAROXABAN
  7. TRAMADOL. [Concomitant]
     Active Substance: TRAMADOL
  8. CALCIUM/COLECALCIFEROL [Concomitant]
     Active Substance: CALCIUM\CHOLECALCIFEROL
     Dosage: COLECALCIFEROL 22U/CALCIUM CARBONATE 750MG
  9. LANSOPRAZOLE. [Concomitant]
     Active Substance: LANSOPRAZOLE
  10. VENTOLIN [Concomitant]
     Active Substance: ALBUTEROL SULFATE
     Route: 055
  11. HYOSCINE [Concomitant]
     Active Substance: SCOPOLAMINE
  12. SALBUTAMOL [Concomitant]
     Active Substance: ALBUTEROL
     Dosage: 2.5MG/2.5ML
  13. RAMIPRIL. [Suspect]
     Active Substance: RAMIPRIL
     Indication: PRODUCT USED FOR UNKNOWN INDICATION
     Dosage: AT NIGHT
     Route: 048
  14. FOSTAIR NEXTHALER [Concomitant]
     Active Substance: BECLOMETHASONE DIPROPIONATE\FORMOTEROL FUMARATE
  15. MOMETASONE [Concomitant]
     Active Substance: MOMETASONE
     Route: 045
  16. CARBOCISTEINE/CARBOCISTEINE LYSINE/CARBOCISTEINE SODIUM [Concomitant]
     Active Substance: CARBOCYSTEINE
  17. FOLIC ACID. [Concomitant]
     Active Substance: FOLIC ACID

REACTIONS (8)
  - Jaundice [Unknown]
  - Acute hepatic failure [Fatal]
  - Hypotension [Unknown]
  - Hepatic necrosis [Unknown]
  - Abdominal pain [Unknown]
  - Multiple organ dysfunction syndrome [Unknown]
  - Hepatic ischaemia [Unknown]
  - Pneumonia [Unknown]

NARRATIVE: CASE EVENT DATE: 20210131
